FAERS Safety Report 9664761 (Version 1)
Quarter: 2013Q4

REPORT INFORMATION
  Report Type: Spontaneous
  Country: IE (occurrence: None)
  Receive Date: 20131031
  Receipt Date: 20131031
  Transmission Date: 20140711
  Serious: Yes (Hospitalization)
  Sender: FDA-Public Use
  Company Number: FK201304768

PATIENT
  Age: 5 Year
  Sex: Female

DRUGS (1)
  1. CISPLATIN [Suspect]
     Indication: ASTROCYTOMA

REACTIONS (6)
  - Ascites [None]
  - Pleural effusion [None]
  - Dyspnoea [None]
  - Headache [None]
  - Nausea [None]
  - CSF protein increased [None]
